FAERS Safety Report 13189091 (Version 4)
Quarter: 2017Q1

REPORT INFORMATION
  Report Type: Report from Study
  Country: BR (occurrence: BR)
  Receive Date: 20170206
  Receipt Date: 20170323
  Transmission Date: 20170428
  Serious: Yes (Hospitalization, Other)
  Sender: FDA-Public Use
  Company Number: BR-ALEXION PHARMACEUTICALS INC.-A201700925

PATIENT
  Age: 28 Year
  Sex: Female

DRUGS (2)
  1. SOLIRIS [Suspect]
     Active Substance: ECULIZUMAB
     Indication: HAEMOLYTIC URAEMIC SYNDROME
     Dosage: 900 MG, WEEKLY FOR 4 WEEKS
     Route: 042
     Dates: start: 20141020, end: 20141110
  2. SOLIRIS [Suspect]
     Active Substance: ECULIZUMAB
     Dosage: 1200 MG, EVERY 14 DAYS
     Route: 042
     Dates: start: 20141117

REACTIONS (7)
  - Skin discolouration [Unknown]
  - Renal transplant [Recovering/Resolving]
  - Haemoglobin decreased [Unknown]
  - Urinary incontinence [Unknown]
  - Nephrostomy [Recovering/Resolving]
  - Nephrostomy tube removal [Recovering/Resolving]
  - Vulvovaginal candidiasis [Recovering/Resolving]

NARRATIVE: CASE EVENT DATE: 20170121
